FAERS Safety Report 7192649-0 (Version None)
Quarter: 2010Q4

REPORT INFORMATION
  Report Type: 
  Country: None (occurrence: None)
  Receive Date: 20101223
  Receipt Date: 20101021
  Transmission Date: 20110411
  Serious: No
  Sender: FDA-Public Use
  Company Number: US-BAYER-201022845BCC

PATIENT
  Sex: Female

DRUGS (1)
  1. ALEVE [Suspect]

REACTIONS (1)
  - PAIN [None]
